FAERS Safety Report 9464419 (Version 1)
Quarter: 2013Q3

REPORT INFORMATION
  Report Type: Spontaneous
  Country: TN (occurrence: TN)
  Receive Date: 20130819
  Receipt Date: 20130819
  Transmission Date: 20140515
  Serious: Yes (Hospitalization)
  Sender: FDA-Public Use
  Company Number: TN-GLAXOSMITHKLINE-B0916093A

PATIENT
  Age: 45 Year
  Sex: 0

DRUGS (8)
  1. NICOTINE [Suspect]
     Indication: PRODUCT USED FOR UNKNOWN INDICATION
     Route: 065
  2. UNKNOWN DRUG [Concomitant]
  3. NAPHAZOLINE HYDROCHLORIDE [Concomitant]
  4. ANTIBIOTICS [Concomitant]
  5. PARENTERAL NUTRITION [Concomitant]
  6. MIDAZOLAM [Concomitant]
  7. FENTANYL [Concomitant]
  8. PROCEDURE PREMEDICATION [Concomitant]

REACTIONS (5)
  - Drug withdrawal syndrome [Unknown]
  - Disturbance in attention [Unknown]
  - Agitation postoperative [Unknown]
  - Delirium [Unknown]
  - Hallucination, visual [Unknown]
